FAERS Safety Report 4632431-9 (Version None)
Quarter: 2005Q2

REPORT INFORMATION
  Report Type: 
  Country: None (occurrence: None)
  Receive Date: 20050401
  Receipt Date: 20040712
  Transmission Date: 20051028
  Serious: Yes (Hospitalization)
  Sender: FDA-Public Use
  Company Number: 04P-163-0266749-00

PATIENT
  Sex: Female

DRUGS (1)
  1. DEPAKOTE [Suspect]

REACTIONS (1)
  - PANCREATITIS ACUTE [None]
